FAERS Safety Report 16965413 (Version 5)
Quarter: 2024Q2

REPORT INFORMATION
  Report Type: Spontaneous
  Country: DE (occurrence: DE)
  Receive Date: 20191028
  Receipt Date: 20240403
  Transmission Date: 20240716
  Serious: Yes (Hospitalization, Other)
  Sender: FDA-Public Use
  Company Number: None

PATIENT
  Age: 37 Year
  Sex: Male

DRUGS (5)
  1. LYRICA [Suspect]
     Active Substance: PREGABALIN
     Indication: Product used for unknown indication
     Dosage: 150 MG, 2X/DAY (150 MG IN THE MORNING, 150 MG IN THE EVENING) REGIMEN DOSE UNIT: MILLIGRAM
     Route: 048
     Dates: start: 2017, end: 20190822
  2. RITALIN [Suspect]
     Active Substance: METHYLPHENIDATE HYDROCHLORIDE
     Indication: Sedation
     Dosage: 100 MG, DAILY (40 MG IN THE MORNING, 60 MG AT NOON)
     Route: 048
     Dates: start: 20180204, end: 20190815
  3. PANTOPRAZOLE [Concomitant]
     Active Substance: PANTOPRAZOLE
     Indication: Product used for unknown indication
     Dosage: UNK
     Route: 065
  4. ALPRAZOLAM [Concomitant]
     Active Substance: ALPRAZOLAM
     Indication: Sedation
     Dosage: 1.5 MILLIGRAM
     Route: 065
  5. MIRTAZAPINE [Concomitant]
     Active Substance: MIRTAZAPINE
     Indication: Product used for unknown indication
     Dosage: 15 MILLIGRAM
     Route: 065

REACTIONS (27)
  - Suicidal ideation [Recovering/Resolving]
  - Self-destructive behaviour [Unknown]
  - Aggression [Recovering/Resolving]
  - Decreased appetite [Recovering/Resolving]
  - Depression [Unknown]
  - Hallucinations, mixed [Recovering/Resolving]
  - Depersonalisation/derealisation disorder [Recovering/Resolving]
  - Feeling abnormal [Recovering/Resolving]
  - Nausea [Recovering/Resolving]
  - Insomnia [Recovering/Resolving]
  - Wound [Unknown]
  - Skin laceration [Unknown]
  - Presyncope [Unknown]
  - Atrial fibrillation [Unknown]
  - Suicidal behaviour [Unknown]
  - Self-injurious ideation [Unknown]
  - Panic reaction [Unknown]
  - Astigmatism [Unknown]
  - Vision blurred [Unknown]
  - Photopsia [Unknown]
  - Dysphoria [Unknown]
  - Irritability [Unknown]
  - Psychomotor hyperactivity [Unknown]
  - Electrocardiogram abnormal [Unknown]
  - Tremor [Recovering/Resolving]
  - Dizziness [Recovering/Resolving]
  - Malaise [Unknown]

NARRATIVE: CASE EVENT DATE: 20190101
